FAERS Safety Report 6978355-3 (Version None)
Quarter: 2010Q3

REPORT INFORMATION
  Report Type: 
  Country: None (occurrence: None)
  Receive Date: 20100913
  Receipt Date: 20100901
  Transmission Date: 20110219
  Serious: Yes (Other)
  Sender: FDA-Public Use
  Company Number: PHEH2010US03714

PATIENT
  Sex: Male

DRUGS (1)
  1. ZOMETA [Suspect]
     Dosage: UNK

REACTIONS (7)
  - ANXIETY [None]
  - DECREASED INTEREST [None]
  - DEFORMITY [None]
  - DYSPEPSIA [None]
  - OSTEONECROSIS OF JAW [None]
  - PAIN [None]
  - STRESS [None]
